FAERS Safety Report 24790916 (Version 2)
Quarter: 2025Q3

REPORT INFORMATION
  Report Type: Spontaneous
  Country: US (occurrence: US)
  Receive Date: 20241230
  Receipt Date: 20250814
  Transmission Date: 20251020
  Serious: No
  Sender: BIOMARIN
  Company Number: US-SA-2024SA375165

PATIENT
  Age: 17 Year
  Sex: Male

DRUGS (2)
  1. ALDURAZYME [Suspect]
     Active Substance: LARONIDASE
     Indication: Mucopolysaccharidosis I
     Dosage: 26.1 MG, QW
     Dates: start: 200908
  2. ALDURAZYME [Suspect]
     Active Substance: LARONIDASE
     Dosage: 26.1 TOTAL DOSE ADMINISTERED WEEKLY

REACTIONS (3)
  - Headache [Unknown]
  - Nausea [Unknown]
  - Intentional dose omission [Unknown]
